FAERS Safety Report 7713340-5 (Version None)
Quarter: 2011Q3

REPORT INFORMATION
  Report Type: 
  Country: None (occurrence: None)
  Receive Date: 20110826
  Receipt Date: 20110823
  Transmission Date: 20111222
  Serious: Yes (Other)
  Sender: FDA-Public Use
  Company Number: CHPA2011US11325

PATIENT
  Age: 77 Year
  Sex: Female

DRUGS (2)
  1. MAALOX ADVANCED REGULAR STRENGTH [Suspect]
     Indication: FLATULENCE
     Dosage: 1 CAPFUL BID, PRN
     Route: 048
     Dates: start: 20110822
  2. MAALOX ADVANCED REGULAR STRENGTH [Suspect]
     Indication: CONSTIPATION
     Dosage: UNK , UNK
     Route: 048

REACTIONS (7)
  - FALL [None]
  - ARTHRALGIA [None]
  - OFF LABEL USE [None]
  - TIBIA FRACTURE [None]
  - CONSTIPATION [None]
  - WRONG TECHNIQUE IN DRUG USAGE PROCESS [None]
  - PAIN IN EXTREMITY [None]
